FAERS Safety Report 5120842-7 (Version None)
Quarter: 2006Q4

REPORT INFORMATION
  Report Type: 
  Country: None (occurrence: None)
  Receive Date: 20061003
  Receipt Date: 20061003
  Transmission Date: 20070319
  Serious: Yes (Hospitalization)
  Sender: FDA-Public Use
  Company Number: None

PATIENT
  Sex: Female
  Weight: 125.1928 kg

DRUGS (4)
  1. SEROQUEL [Suspect]
     Indication: DEPRESSION
     Dates: start: 20051006
  2. SEROQUEL [Suspect]
     Indication: PSYCHOTIC DISORDER
     Dates: start: 20051006
  3. SEROQUEL [Suspect]
     Indication: DEPRESSION
     Dates: start: 20060501
  4. SEROQUEL [Suspect]
     Indication: PSYCHOTIC DISORDER
     Dates: start: 20060501

REACTIONS (5)
  - DISCOMFORT [None]
  - HEADACHE [None]
  - INJURY [None]
  - PAIN [None]
  - TONGUE DISORDER [None]
